FAERS Safety Report 11318885 (Version 1)
Quarter: 2015Q3

REPORT INFORMATION
  Report Type: Spontaneous
  Country: US (occurrence: US)
  Receive Date: 20150729
  Receipt Date: 20150729
  Transmission Date: 20151125
  Serious: No
  Sender: FDA-Public Use
  Company Number: US-ACTELION PHARMACEUTICALS US, INC.-A-NJ2015-111437

PATIENT
  Age: 87 Year
  Sex: Female

DRUGS (8)
  1. SOTALOL. [Concomitant]
     Active Substance: SOTALOL
     Dosage: 80 MG, UNK
  2. MOMETASONE [Concomitant]
     Active Substance: MOMETASONE
     Dosage: 0.1 %, UNK
  3. OPSUMIT [Suspect]
     Active Substance: MACITENTAN
     Indication: PULMONARY ARTERIAL HYPERTENSION
     Dosage: 10 MG, UNK
     Route: 048
     Dates: start: 20141021, end: 20150102
  4. LOSARTAN. [Concomitant]
     Active Substance: LOSARTAN
     Dosage: 25 MG, UNK
  5. DOXYCYCLINE. [Concomitant]
     Active Substance: DOXYCYCLINE
  6. PAROXETINE [Concomitant]
     Active Substance: PAROXETINE\PAROXETINE HYDROCHLORIDE
     Dosage: 10 MG, UNK
  7. DILTIAZEM HYDROCHLORIDE EXTENDED RELEASE [Concomitant]
     Active Substance: DILTIAZEM HYDROCHLORIDE
     Dosage: 120 MG, UNK
  8. SPIRONOLACTONE AND HYDROCHLOROTHIAZIDE [Concomitant]
     Active Substance: HYDROCHLOROTHIAZIDE\SPIRONOLACTONE
     Dosage: 25/25 MG, UNK

REACTIONS (2)
  - Drug ineffective [Recovering/Resolving]
  - Nausea [Recovering/Resolving]
